FAERS Safety Report 5157089-4 (Version None)
Quarter: 2006Q4

REPORT INFORMATION
  Report Type: 
  Country: None (occurrence: None)
  Receive Date: 20061127
  Receipt Date: 20061114
  Transmission Date: 20070319
  Serious: Yes (Hospitalization, Other)
  Sender: FDA-Public Use
  Company Number: GB-ELI_LILLY_AND_COMPANY-GB200611002417

PATIENT
  Age: 31 Year
  Sex: Male

DRUGS (11)
  1. ZYPREXA [Suspect]
     Dosage: 10 MG, DAILY (1/D)
  2. ZYPREXA [Suspect]
     Dosage: 2.5 MG, DAILY (1/D)
  3. ZYPREXA [Suspect]
     Dosage: 5 MG, DAILY (1/D)
     Dates: end: 20060501
  4. ZYPREXA [Suspect]
     Dosage: 10 MG, DAILY (1/D)
     Dates: start: 20060501
  5. HALOPERIDOL [Concomitant]
     Dosage: 3 TIMES
     Route: 030
  6. DIAZEPAM [Concomitant]
  7. ACETAMINOPHEN [Concomitant]
     Dosage: UNK, AS NEEDED
  8. FLUTICASONE PROPIONATE W/SALMETEROL XINAFOATE [Concomitant]
  9. ARIPIPRAZOLE [Concomitant]
     Dosage: 15 MG, UNK
  10. BENZODIAZEPINE DERIVATIVES [Concomitant]
  11. ANTIBIOTICS [Concomitant]

REACTIONS (5)
  - CONDITION AGGRAVATED [None]
  - GRAND MAL CONVULSION [None]
  - MENTAL DISORDER [None]
  - NEUROLEPTIC MALIGNANT SYNDROME [None]
  - PSYCHOTIC DISORDER [None]
